FAERS Safety Report 4366251-X (Version None)
Quarter: 2004Q2

REPORT INFORMATION
  Report Type: 
  Country: None (occurrence: None)
  Receive Date: 20040526
  Receipt Date: 20040526
  Transmission Date: 20050107
  Serious: No
  Sender: FDA-Public Use
  Company Number: None

PATIENT
  Age: 72 Year
  Sex: Female
  Weight: 51.3 kg

DRUGS (14)
  1. QUETIAPINE 50 MG ASTRA-ZENECA [Suspect]
     Indication: DEMENTIA ALZHEIMER'S TYPE
     Dosage: 50 MG BID ORAL
     Route: 048
     Dates: start: 20040322, end: 20040428
  2. QUETIAPINE 300 MG ASTRA-ZENECA [Suspect]
     Indication: DEMENTIA ALZHEIMER'S TYPE
     Dosage: 300 MG BID ORAL
     Route: 048
     Dates: start: 20040322, end: 20040428
  3. ARICEPT [Concomitant]
  4. BISACODYL [Concomitant]
  5. DOCUSATE NA [Concomitant]
  6. FOLIC ACID [Concomitant]
  7. LEXAPRO [Concomitant]
  8. MOM [Concomitant]
  9. THIAMINE [Concomitant]
  10. MULTI-VIT [Concomitant]
  11. APAP TAB [Concomitant]
  12. HALOPERIDOL [Concomitant]
  13. MAALOX [Concomitant]
  14. LORAZEPAM [Concomitant]

REACTIONS (1)
  - FAECALOMA [None]
